FAERS Safety Report 17669422 (Version 1)
Quarter: 2020Q2

REPORT INFORMATION
  Report Type: Report from Study
  Country: IT (occurrence: IT)
  Receive Date: 20200415
  Receipt Date: 20200415
  Transmission Date: 20200713
  Serious: Yes (Hospitalization)
  Sender: FDA-Public Use
  Company Number: IT-TEVA-2020-IT-1223121

PATIENT
  Age: 66 Year
  Sex: Male
  Weight: 120 kg

DRUGS (7)
  1. AMLODIPINE [Suspect]
     Active Substance: AMLODIPINE BESYLATE
     Indication: INTENTIONAL SELF-INJURY
     Dosage: 60 MG
     Route: 048
     Dates: start: 20200101, end: 20200101
  2. ESOMEPRAZOLE SODIUM. [Suspect]
     Active Substance: ESOMEPRAZOLE SODIUM
     Indication: INTENTIONAL SELF-INJURY
     Dosage: 280 MG
     Route: 048
     Dates: start: 20200101, end: 20200101
  3. ROSUVASTATIN CALCIUM. [Suspect]
     Active Substance: ROSUVASTATIN CALCIUM
     Indication: INTENTIONAL SELF-INJURY
     Dosage: 1040 MG
     Route: 048
     Dates: start: 20200101, end: 20200101
  4. CARDIOASPIRIN 100 MG COMPRESSE GASTRORESISTENTI [Concomitant]
     Active Substance: ASPIRIN
  5. FUROSEMIDE. [Suspect]
     Active Substance: FUROSEMIDE
     Indication: INTENTIONAL SELF-INJURY
     Dosage: 350 MG
     Route: 048
     Dates: start: 20200101, end: 20200101
  6. HUMALOG [Suspect]
     Active Substance: INSULIN LISPRO
     Indication: INTENTIONAL SELF-INJURY
     Dosage: 100 IU
     Route: 058
     Dates: start: 20200101, end: 20200101
  7. JARDIANCE [Suspect]
     Active Substance: EMPAGLIFLOZIN
     Indication: INTENTIONAL SELF-INJURY
     Dosage: 26 DF
     Route: 048
     Dates: start: 20200101, end: 20200101

REACTIONS (2)
  - Drug abuse [Unknown]
  - Bradyphrenia [Unknown]

NARRATIVE: CASE EVENT DATE: 20200101
